FAERS Safety Report 18098626 (Version 1)
Quarter: 2020Q3

REPORT INFORMATION
  Report Type: Spontaneous
  Country: US (occurrence: US)
  Receive Date: 20200731
  Receipt Date: 20200731
  Transmission Date: 20201103
  Serious: Yes (Other)
  Sender: FDA-Public Use
  Company Number: US-TARO-2020TAR01276

PATIENT
  Age: 5 Month
  Sex: Female

DRUGS (1)
  1. TRIAMCINOLONE 0.1% [Suspect]
     Active Substance: TRIAMCINOLONE
     Indication: DERMATITIS DIAPER
     Dosage: 4?5 TIMES DAILY TO 6% OF HER BODY SURFACE AREA
     Route: 061

REACTIONS (4)
  - Cushing^s syndrome [Recovering/Resolving]
  - Adrenal insufficiency neonatal [Recovered/Resolved]
  - Incorrect dose administered [Unknown]
  - Overdose [Unknown]
